FAERS Safety Report 26191188 (Version 1)
Quarter: 2025Q4

REPORT INFORMATION
  Report Type: Spontaneous
  Country: BR (occurrence: BR)
  Receive Date: 20251223
  Receipt Date: 20251223
  Transmission Date: 20260117
  Serious: Yes (Other)
  Sender: BAYER HEALTHCARE PHARMACEUTICALS INC.
  Company Number: BR-BAYER-2025A167079

PATIENT
  Age: 50 Year
  Sex: Male

DRUGS (1)
  1. ULTRAVIST [Suspect]
     Active Substance: IOPROMIDE
     Indication: Urogram
     Dosage: UNK 623.40 MG/ML INJECTABLE SOLUTION 10 GLASS VIAL BOX X 100 ML
     Dates: start: 202512, end: 202512

REACTIONS (3)
  - Urticaria [Unknown]
  - Back pain [Unknown]
  - Pelvic pain [Unknown]

NARRATIVE: CASE EVENT DATE: 20251201
